FAERS Safety Report 19462567 (Version 1)
Quarter: 2021Q2

REPORT INFORMATION
  Report Type: Spontaneous
  Country: NL (occurrence: NL)
  Receive Date: 20210625
  Receipt Date: 20210625
  Transmission Date: 20210717
  Serious: Yes (Other)
  Sender: FDA-Public Use
  Company Number: NL-TEVA-2021-NL-1925547

PATIENT
  Sex: Female
  Weight: 70 kg

DRUGS (5)
  1. TAMOXIFEN TABLET 20MG / BRAND NAME NOT SPECIFIED [Suspect]
     Active Substance: TAMOXIFEN
     Indication: BREAST CANCER
     Dosage: 20 MILLIGRAM DAILY; 1 X 1 TABLETTHERAPY END DATE :ASKU
     Dates: start: 20210114
  2. AZIJNZUUR/TRIAMCINOLONACETONIDE OORDR 7,2/1MG/G / ZURE OORDRUPPELS M T [Concomitant]
     Dosage: THERAPY START DATE :THERAPY END DATE:ASKU
  3. ZOMETA [Suspect]
     Active Substance: ZOLEDRONIC ACID
     Indication: OSTEOPOROSIS
     Dosage: IMMTHERAPY END DATE :AKSU:UNIT DOSE:1DOSAGEFORM
     Dates: start: 20210428
  4. CALCIUMCARB/COLECALC KAUWTB 2,5G/800IE (1000MG CA) / CALCI CHEW D3 KAU [Concomitant]
     Active Substance: CALCIUM CARBONATE\CHOLECALCIFEROL
     Dosage: THERAPY START DATE:THERAPY END DATE :ASKU
  5. MAGNESIUMHYDROXIDE KAUWTABLET 724MG / BRAND NAME NOT SPECIFIED [Concomitant]
     Dosage: THERAPY START DATE :THERAPY END DATE :ASKU

REACTIONS (1)
  - Hypothyroidism [Not Recovered/Not Resolved]
